FAERS Safety Report 23206044 (Version 3)
Quarter: 2025Q1

REPORT INFORMATION
  Report Type: Report from Study
  Country: JP (occurrence: JP)
  Receive Date: 20231120
  Receipt Date: 20250109
  Transmission Date: 20250409
  Serious: Yes (Life-Threatening, Hospitalization, Other)
  Sender: TAKEDA
  Company Number: JP-TAKEDA-2023TJP015342

PATIENT
  Age: 13 Year
  Sex: Female

DRUGS (7)
  1. ICATIBANT [Suspect]
     Active Substance: ICATIBANT ACETATE
     Indication: Hereditary angioedema
  2. ICATIBANT [Suspect]
     Active Substance: ICATIBANT ACETATE
  3. TAKHZYRO [Suspect]
     Active Substance: LANADELUMAB-FLYO
     Indication: Hereditary angioedema
  4. TAKHZYRO [Suspect]
     Active Substance: LANADELUMAB-FLYO
     Dosage: UNK UNK, Q2WEEKS
  5. ORLADEYO [Concomitant]
     Active Substance: BEROTRALSTAT HYDROCHLORIDE
     Indication: Product used for unknown indication
  6. LANSOPRAZOLE [Concomitant]
     Active Substance: LANSOPRAZOLE
     Indication: Hereditary angioedema
  7. TRANSAMIN [Concomitant]
     Active Substance: TRANEXAMIC ACID
     Indication: Hereditary angioedema

REACTIONS (22)
  - Respiratory failure [Unknown]
  - Laryngeal oedema [Unknown]
  - Respiratory failure [Unknown]
  - Laryngeal stenosis [Recovering/Resolving]
  - Brain oedema [Recovering/Resolving]
  - Hereditary angioedema [Unknown]
  - Nausea [Unknown]
  - Vomiting [Unknown]
  - Diarrhoea [Unknown]
  - Dysmenorrhoea [Unknown]
  - Hereditary angioedema [Unknown]
  - Drug ineffective [Unknown]
  - Adjustment disorder [Unknown]
  - Dizziness [Unknown]
  - Joint dislocation [Unknown]
  - Product use complaint [Unknown]
  - Off label use [Unknown]
  - Malaise [Unknown]
  - Abdominal pain [Unknown]
  - Nausea [Unknown]
  - Dizziness [Unknown]
  - Product use complaint [Unknown]

NARRATIVE: CASE EVENT DATE: 20210605
